FAERS Safety Report 18706782 (Version 2)
Quarter: 2021Q1

REPORT INFORMATION
  Report Type: Report from Study
  Country: US (occurrence: US)
  Receive Date: 20210106
  Receipt Date: 20210323
  Transmission Date: 20210419
  Serious: Yes (Death)
  Sender: FDA-Public Use
  Company Number: US-VIFOR (INTERNATIONAL) INC.-VIT-2021-00018

PATIENT
  Age: 57 Year
  Sex: Male
  Weight: 87.1 kg

DRUGS (11)
  1. VELPHORO [Suspect]
     Active Substance: SUCROFERRIC OXYHYDROXIDE
     Indication: CHRONIC KIDNEY DISEASE
     Route: 048
     Dates: start: 201911, end: 20201213
  2. CINACALCET. [Concomitant]
     Active Substance: CINACALCET
     Route: 048
  3. BASAGLAR KWIKPEN U?100 INSULIN [Concomitant]
     Dosage: 100 UNIT/ML
     Route: 058
  4. FAMOTIDINE. [Concomitant]
     Active Substance: FAMOTIDINE
     Route: 048
  5. LOSARTAN. [Concomitant]
     Active Substance: LOSARTAN
     Route: 048
  6. CALCITRIOL. [Concomitant]
     Active Substance: CALCITRIOL
     Route: 048
  7. CARVEDILOL. [Concomitant]
     Active Substance: CARVEDILOL
     Indication: BLOOD PRESSURE MEASUREMENT
     Route: 048
  8. TRAZODONE [Concomitant]
     Active Substance: TRAZODONE HYDROCHLORIDE
     Indication: SLEEP DISORDER
     Route: 048
  9. VELTASSA [Concomitant]
     Active Substance: PATIROMER
     Route: 048
  10. SODIUM BICARBONATE. [Concomitant]
     Active Substance: SODIUM BICARBONATE
     Route: 048
  11. NOVOLOG U?100 INSULIN ASPART [Concomitant]
     Dosage: 100 UNIT/ML
     Route: 058

REACTIONS (1)
  - Death [Fatal]

NARRATIVE: CASE EVENT DATE: 202012
